FAERS Safety Report 9013283 (Version 1)
Quarter: 2013Q1

REPORT INFORMATION
  Report Type: Spontaneous
  Country: US (occurrence: US)
  Receive Date: 20130115
  Receipt Date: 20130115
  Transmission Date: 20140127
  Serious: No
  Sender: FDA-Public Use
  Company Number: US-009507513-1301USA003448

PATIENT
  Age: 48 Year
  Sex: Male

DRUGS (3)
  1. PROVENTIL [Suspect]
     Indication: ASTHMA
     Dosage: 90 MCG, EVERY 6 HOURS OR AS NEEDED
     Route: 055
     Dates: start: 1993
  2. INSULIN [Concomitant]
  3. LANTUS [Concomitant]

REACTIONS (3)
  - Wheezing [Not Recovered/Not Resolved]
  - Drug dose omission [Unknown]
  - Product quality issue [Unknown]
